FAERS Safety Report 12799988 (Version 1)
Quarter: 2016Q3

REPORT INFORMATION
  Report Type: Report from Study
  Country: US (occurrence: US)
  Receive Date: 20160930
  Receipt Date: 20160930
  Transmission Date: 20161109
  Serious: Yes (Hospitalization)
  Sender: FDA-Public Use
  Company Number: US-BIOGEN-2016BI00297731

PATIENT
  Sex: Female

DRUGS (1)
  1. TYSABRI [Suspect]
     Active Substance: NATALIZUMAB
     Indication: MULTIPLE SCLEROSIS
     Route: 065

REACTIONS (7)
  - Abasia [Unknown]
  - Dizziness [Unknown]
  - Diplopia [Unknown]
  - Body temperature decreased [Unknown]
  - Hyperaesthesia [Unknown]
  - Multiple sclerosis relapse [Unknown]
  - Slow speech [Unknown]
